FAERS Safety Report 13881982 (Version 2)
Quarter: 2017Q3

REPORT INFORMATION
  Report Type: Report from Study
  Country: US (occurrence: US)
  Receive Date: 20170818
  Receipt Date: 20170825
  Transmission Date: 20171127
  Serious: Yes (Other)
  Sender: FDA-Public Use
  Company Number: US-ROCHE-1975185

PATIENT
  Age: 59 Year
  Sex: Male
  Weight: 109.41 kg

DRUGS (12)
  1. OCREVUS [Suspect]
     Active Substance: OCRELIZUMAB
     Indication: MULTIPLE SCLEROSIS
     Dosage: DAY ONE , DAY 15 THEN EVERY 6 MONTHS?ONGOING:YES
     Route: 042
     Dates: start: 20170614
  2. METFORMIN [Concomitant]
     Active Substance: METFORMIN HYDROCHLORIDE
     Indication: TYPE 2 DIABETES MELLITUS
     Route: 048
  3. OCREVUS [Suspect]
     Active Substance: OCRELIZUMAB
     Indication: MULTIPLE SCLEROSIS RELAPSE
  4. BUPROPION. [Concomitant]
     Active Substance: BUPROPION
     Route: 048
  5. MIRTAZAPINE. [Concomitant]
     Active Substance: MIRTAZAPINE
     Route: 048
  6. MIRALAX [Concomitant]
     Active Substance: POLYETHYLENE GLYCOL 3350
     Route: 048
  7. DIVON [Concomitant]
     Dosage: 160-125MG
     Route: 048
  8. NEXIUM [Concomitant]
     Active Substance: ESOMEPRAZOLE MAGNESIUM
     Indication: GASTROOESOPHAGEAL REFLUX DISEASE
     Route: 048
  9. GLIPIZIDE. [Concomitant]
     Active Substance: GLIPIZIDE
     Indication: TYPE 2 DIABETES MELLITUS
     Route: 048
  10. ONDANSETRON [Concomitant]
     Active Substance: ONDANSETRON
     Route: 048
  11. ADVIL [Concomitant]
     Active Substance: IBUPROFEN
     Route: 048
  12. LORAZEPAM. [Concomitant]
     Active Substance: LORAZEPAM
     Route: 048

REACTIONS (5)
  - Insomnia [Not Recovered/Not Resolved]
  - Burning sensation [Not Recovered/Not Resolved]
  - Herpes zoster [Recovering/Resolving]
  - Paraesthesia [Not Recovered/Not Resolved]
  - Ophthalmic herpes zoster [Recovering/Resolving]

NARRATIVE: CASE EVENT DATE: 20170804
